FAERS Safety Report 10689375 (Version 1)
Quarter: 2015Q1

REPORT INFORMATION
  Report Type: Spontaneous
  Country: US (occurrence: None)
  Receive Date: 20150102
  Receipt Date: 20150102
  Transmission Date: 20150720
  Serious: No
  Sender: FDA-Public Use
  Company Number: None

PATIENT
  Age: 46 Year
  Sex: Male
  Weight: 112.7 kg

DRUGS (1)
  1. PROBENECID. [Suspect]
     Active Substance: PROBENECID
     Route: 048
     Dates: start: 20141124, end: 20141125

REACTIONS (4)
  - Pruritus [None]
  - Dyspnoea [None]
  - Respiratory depression [None]
  - Urticaria [None]

NARRATIVE: CASE EVENT DATE: 20141125
